FAERS Safety Report 20856596 (Version 1)
Quarter: 2022Q2

REPORT INFORMATION
  Report Type: Spontaneous
  Country: US (occurrence: US)
  Receive Date: 20220520
  Receipt Date: 20220520
  Transmission Date: 20220721
  Serious: No
  Sender: FDA-Public Use
  Company Number: US-SA-SAC20220513000281

PATIENT
  Sex: Female

DRUGS (5)
  1. DUPIXENT [Suspect]
     Active Substance: DUPILUMAB
     Indication: Dermatitis atopic
     Dosage: UNK
     Dates: start: 20220210
  2. ESTRACE [Concomitant]
     Active Substance: ESTRADIOL
  3. VITAMIN D NOS [Concomitant]
     Active Substance: VITAMIN D NOS
  4. ZYRTEC-D 12HR [Concomitant]
     Dosage: 5 MG-120MG
  5. VITAMIN B12 [Concomitant]
     Active Substance: CYANOCOBALAMIN

REACTIONS (1)
  - Rash pruritic [Unknown]
